FAERS Safety Report 6125716-0 (Version None)
Quarter: 2009Q1

REPORT INFORMATION
  Report Type: 
  Country: None (occurrence: None)
  Receive Date: 20090319
  Receipt Date: 20090319
  Transmission Date: 20090719
  Serious: Yes (Life-Threatening, Other)
  Sender: FDA-Public Use
  Company Number: None

PATIENT
  Age: 75 Year
  Sex: Male
  Weight: 68.0396 kg

DRUGS (2)
  1. PLAVIX [Suspect]
     Indication: ANGIOPLASTY
     Dosage: ONE DAILY ONE DAILY BUCCAL
     Route: 002
     Dates: start: 20030101, end: 20090225
  2. PLAVIX [Suspect]
     Indication: GLOBAL AMNESIA
     Dosage: ONE DAILY ONE DAILY BUCCAL
     Route: 002
     Dates: start: 20030101, end: 20090225

REACTIONS (1)
  - PANCYTOPENIA [None]
